FAERS Safety Report 5286648-3 (Version None)
Quarter: 2007Q2

REPORT INFORMATION
  Report Type: 
  Country: None (occurrence: None)
  Receive Date: 20070404
  Receipt Date: 20070330
  Transmission Date: 20071010
  Serious: Yes (Hospitalization)
  Sender: FDA-Public Use
  Company Number: BE-GLAXOSMITHKLINE-B0464793A

PATIENT
  Age: 84 Year
  Sex: Female

DRUGS (6)
  1. LAPATINIB [Suspect]
     Dosage: 1250MG PER DAY
     Route: 048
     Dates: start: 20061223, end: 20070307
  2. CAPECITABINE [Suspect]
     Dosage: 1500MG TWICE PER DAY
     Route: 048
     Dates: start: 20061223, end: 20070216
  3. DURAGESIC-100 [Concomitant]
     Indication: PAIN
     Dosage: 37.5MGH AS DIRECTED
     Route: 061
     Dates: start: 20060508
  4. PARIET [Concomitant]
     Indication: GASTRIC ULCER
     Dosage: 10MG PER DAY
     Route: 048
     Dates: start: 20030101
  5. ZANIDIP [Concomitant]
     Indication: HYPERTENSION
     Dosage: 10MG PER DAY
     Route: 048
     Dates: start: 20060821
  6. SERLAIN [Concomitant]
     Dosage: 50MG PER DAY
     Route: 048
     Dates: start: 20060811

REACTIONS (5)
  - ABDOMINAL PAIN UPPER [None]
  - ASTHENIA [None]
  - EATING DISORDER [None]
  - FATIGUE [None]
  - OESOPHAGEAL PAIN [None]
